FAERS Safety Report 19089975 (Version 1)
Quarter: 2021Q2

REPORT INFORMATION
  Report Type: Spontaneous
  Country: AR (occurrence: AR)
  Receive Date: 20210404
  Receipt Date: 20210404
  Transmission Date: 20210717
  Serious: Yes (Hospitalization)
  Sender: FDA-Public Use
  Company Number: NVSC2021AR072946

PATIENT
  Sex: Female

DRUGS (1)
  1. TEGRETOL [Suspect]
     Active Substance: CARBAMAZEPINE
     Indication: EPILEPSY
     Dosage: UNK, QD (3 OF 400 (UNITS NOT PROVIDED), STARTED 16 YEARS AGO)
     Route: 065

REACTIONS (3)
  - Product dose omission issue [Unknown]
  - Epilepsy [Recovered/Resolved]
  - Product availability issue [Unknown]
